FAERS Safety Report 9961327 (Version 2)
Quarter: 2014Q2

REPORT INFORMATION
  Report Type: Report from Study
  Country: MX (occurrence: MX)
  Receive Date: 20140305
  Receipt Date: 20140516
  Transmission Date: 20141212
  Serious: Yes (Other)
  Sender: FDA-Public Use
  Company Number: PHHY2014MX025725

PATIENT
  Age: 93 Year
  Sex: Female

DRUGS (5)
  1. ONBREZ [Suspect]
     Indication: CHRONIC OBSTRUCTIVE PULMONARY DISEASE
     Dosage: 300 UG, DAILY
     Route: 055
     Dates: start: 20130201, end: 201401
  2. ALVESCO [Suspect]
     Dosage: UNK
     Dates: end: 201312
  3. ATROVENT [Suspect]
     Dosage: UNK UKN, UNK
     Dates: end: 201312
  4. ZESTORETIC [Concomitant]
     Indication: BLOOD PRESSURE ABNORMAL
     Dosage: 1 DF, DAILY
  5. ASPIRIN PROTECT [Concomitant]
     Indication: HEADACHE
     Dosage: 1 DF, DAILY
     Dates: start: 201201

REACTIONS (5)
  - Varicose ulceration [Recovering/Resolving]
  - Hypertension [Unknown]
  - Tongue injury [Recovered/Resolved]
  - Loose tooth [Recovered/Resolved]
  - Mouth injury [Recovered/Resolved]
